FAERS Safety Report 14956935 (Version 1)
Quarter: 2018Q2

REPORT INFORMATION
  Report Type: Spontaneous
  Country: GB (occurrence: GB)
  Receive Date: 20180531
  Receipt Date: 20180531
  Transmission Date: 20180711
  Serious: Yes (Other)
  Sender: FDA-Public Use
  Company Number: PHHY2018GB010952

PATIENT
  Age: 5 Year
  Sex: Male

DRUGS (2)
  1. FLIXOTIDE [Concomitant]
     Active Substance: FLUTICASONE PROPIONATE
     Indication: PRODUCT USED FOR UNKNOWN INDICATION
     Dosage: UNK
     Route: 065
  2. MONTELUKAST SODIUM. [Suspect]
     Active Substance: MONTELUKAST SODIUM
     Indication: ASTHMA
     Dosage: 1 DF, UNK (SACHET)
     Route: 048

REACTIONS (4)
  - Emotional disorder [Unknown]
  - Aggression [Recovered/Resolved]
  - Sleep terror [Unknown]
  - Nightmare [Recovered/Resolved]
